FAERS Safety Report 4720515-6 (Version None)
Quarter: 2005Q3

REPORT INFORMATION
  Report Type: 
  Country: None (occurrence: None)
  Receive Date: 20050721
  Receipt Date: 20050413
  Transmission Date: 20060218
  Serious: No
  Sender: FDA-Public Use
  Company Number: US-BRISTOL-MYERS SQUIBB COMPANY-12932570

PATIENT
  Age: 68 Year
  Sex: Male

DRUGS (5)
  1. GLUCOVANCE [Suspect]
     Indication: DIABETES MELLITUS NON-INSULIN-DEPENDENT
     Dosage: 2.5/500 MG
     Route: 048
     Dates: start: 20050316, end: 20050320
  2. LIPITOR [Concomitant]
     Route: 048
  3. PLAVIX [Concomitant]
     Route: 048
  4. ALTACE [Concomitant]
     Route: 048
  5. COREG [Concomitant]
     Route: 048

REACTIONS (7)
  - ABDOMINAL PAIN UPPER [None]
  - ASTHENIA [None]
  - BLOOD GLUCOSE INCREASED [None]
  - DIARRHOEA [None]
  - DIZZINESS [None]
  - NAUSEA [None]
  - VISUAL ACUITY REDUCED [None]
